FAERS Safety Report 6034800-1 (Version None)
Quarter: 2009Q1

REPORT INFORMATION
  Report Type: 
  Country: None (occurrence: None)
  Receive Date: 20090112
  Receipt Date: 20090105
  Transmission Date: 20090719
  Serious: Yes (Death)
  Sender: FDA-Public Use
  Company Number: AU-ELI_LILLY_AND_COMPANY-AU200811004652

PATIENT
  Age: 45 Year
  Sex: Male

DRUGS (2)
  1. ZYPREXA [Suspect]
     Indication: SCHIZOPHRENIA
     Dosage: 15 MG, 2/D
  2. VALIUM [Concomitant]
     Indication: ANXIETY
     Dosage: 5 MG, 2/D

REACTIONS (2)
  - DEATH [None]
  - OVERDOSE [None]
